FAERS Safety Report 6423076-9 (Version None)
Quarter: 2009Q4

REPORT INFORMATION
  Report Type: 
  Country: None (occurrence: None)
  Receive Date: 20091028
  Receipt Date: 20091015
  Transmission Date: 20100525
  Serious: Yes (Other)
  Sender: FDA-Public Use
  Company Number: 2009AP003165

PATIENT
  Age: 76 Year
  Sex: Female

DRUGS (8)
  1. ALENDRONATE SODIUM [Suspect]
     Indication: OSTEOPOROSIS
     Dosage: 70 MG; QW; PO
     Route: 048
     Dates: start: 20090726, end: 20090802
  2. VALSARTAN [Concomitant]
  3. SIMVASTATIN [Concomitant]
  4. MULTI-VITAMINS [Concomitant]
  5. METOPROLOL [Concomitant]
  6. ALENDRONATE SODIUM [Concomitant]
  7. RISEDRONATE SODIUM [Concomitant]
  8. IBANDRONATE SODIUM [Concomitant]

REACTIONS (6)
  - DIARRHOEA [None]
  - EYE SWELLING [None]
  - HEADACHE [None]
  - OROPHARYNGEAL PAIN [None]
  - URTICARIA [None]
  - VISUAL IMPAIRMENT [None]
